FAERS Safety Report 8515901-2 (Version None)
Quarter: 2012Q3

REPORT INFORMATION
  Report Type: 
  Country: None (occurrence: None)
  Receive Date: 20120717
  Receipt Date: 20120716
  Transmission Date: 20120928
  Serious: Yes (Other)
  Sender: FDA-Public Use
  Company Number: PHFR2012GB002985

PATIENT
  Sex: Male

DRUGS (4)
  1. CLOZARIL [Suspect]
     Indication: SCHIZOPHRENIA
     Route: 048
     Dates: start: 20120502
  2. CLOZARIL [Suspect]
     Dosage: 12.5 MG, BID
     Route: 048
     Dates: start: 20120503
  3. CLOZARIL [Suspect]
     Dosage: 125 MG, BID
     Route: 048
     Dates: start: 20120615
  4. VALPROATE SODIUM [Concomitant]
     Indication: AFFECTIVE DISORDER
     Dosage: 1500 MG, UNK
     Route: 048
     Dates: start: 20120427

REACTIONS (4)
  - INFECTION [None]
  - HEART RATE INCREASED [None]
  - SALIVARY HYPERSECRETION [None]
  - HYPERTENSION [None]
